FAERS Safety Report 24123059 (Version 1)
Quarter: 2024Q3

REPORT INFORMATION
  Report Type: Spontaneous
  Country: US (occurrence: US)
  Receive Date: 20240723
  Receipt Date: 20240723
  Transmission Date: 20241017
  Serious: No
  Sender: OTSUKA
  Company Number: US-OTSUKA-2024_017787

PATIENT
  Age: 24 Year
  Sex: Female
  Weight: 99.79 kg

DRUGS (2)
  1. REXULTI [Suspect]
     Active Substance: BREXPIPRAZOLE
     Indication: Schizotypal personality disorder
     Dosage: 1 MG
     Route: 065
     Dates: start: 20230821
  2. REXULTI [Suspect]
     Active Substance: BREXPIPRAZOLE
     Dosage: 2 MG, QD
     Route: 065

REACTIONS (6)
  - Blood cholesterol increased [Unknown]
  - Product packaging quantity issue [Unknown]
  - Product container seal issue [Unknown]
  - Off label use [Not Recovered/Not Resolved]
  - Product use issue [Unknown]
  - Product dose omission issue [Not Recovered/Not Resolved]

NARRATIVE: CASE EVENT DATE: 20240301
